FAERS Safety Report 7294284-2 (Version None)
Quarter: 2011Q1

REPORT INFORMATION
  Report Type: 
  Country: None (occurrence: None)
  Receive Date: 20110215
  Receipt Date: 20110128
  Transmission Date: 20110831
  Serious: Yes (Hospitalization)
  Sender: FDA-Public Use
  Company Number: US-B.I. PHARMACEUTICALS,INC./RIDGEFIELD-2011-BP-01781BP

PATIENT
  Age: 62 Year
  Sex: Female

DRUGS (17)
  1. CARDIZEM [Suspect]
     Indication: ATRIAL FIBRILLATION
     Dosage: 600 MG
     Route: 048
  2. ASPIRIN [Concomitant]
     Dosage: 81 MG
     Route: 048
  3. FORMOTEROL FUMARATE [Concomitant]
     Indication: CHRONIC OBSTRUCTIVE PULMONARY DISEASE
     Route: 055
  4. LASIX [Concomitant]
     Indication: CARDIAC FAILURE CONGESTIVE
     Dosage: 40 MG
     Route: 048
  5. BIMATOPROST [Concomitant]
  6. BRIMONIDINE [Concomitant]
  7. PRADAXA [Suspect]
     Indication: ATRIAL FIBRILLATION
     Dosage: 300 MG
     Route: 048
     Dates: start: 20110113
  8. EZETIMIBE [Concomitant]
     Route: 048
  9. FLOVENT [Concomitant]
     Indication: CHRONIC OBSTRUCTIVE PULMONARY DISEASE
     Route: 055
  10. SIMVASTATIN [Concomitant]
     Route: 048
  11. COLACE [Concomitant]
     Route: 048
  12. SPIRIVA [Suspect]
     Indication: CHRONIC OBSTRUCTIVE PULMONARY DISEASE
     Dosage: 18 MCG
     Route: 055
  13. ALBUTEROL [Concomitant]
     Indication: CHRONIC OBSTRUCTIVE PULMONARY DISEASE
     Route: 055
  14. SOLU-MEDROL [Concomitant]
     Indication: CHRONIC OBSTRUCTIVE PULMONARY DISEASE
     Route: 055
  15. SYNTHROID [Concomitant]
     Indication: HYPOTHYROIDISM
     Route: 048
  16. METOPROLOL [Concomitant]
     Dosage: 50 MG
     Route: 048
  17. POTASSIUM CHLORIDE [Concomitant]
     Indication: PROPHYLAXIS
     Route: 048

REACTIONS (3)
  - CARDIAC FAILURE CONGESTIVE [None]
  - MUSCLE TWITCHING [None]
  - CONCOMITANT DISEASE AGGRAVATED [None]
